FAERS Safety Report 4635941-3 (Version None)
Quarter: 2005Q2

REPORT INFORMATION
  Report Type: 
  Country: None (occurrence: None)
  Receive Date: 20050413
  Receipt Date: 20050329
  Transmission Date: 20051028
  Serious: Yes (Hospitalization)
  Sender: FDA-Public Use
  Company Number: 2005BI003058

PATIENT
  Age: 38 Year
  Sex: Female

DRUGS (14)
  1. AVONEX [Suspect]
     Indication: MULTIPLE SCLEROSIS
     Dosage: 30 UG; QW; IM
     Route: 030
     Dates: start: 19970710, end: 20030701
  2. AVONEX [Suspect]
     Indication: MULTIPLE SCLEROSIS
     Dosage: 30 UG; QW; IM
     Route: 030
     Dates: start: 20030801, end: 20040701
  3. AVONEX [Suspect]
     Indication: MULTIPLE SCLEROSIS
     Dosage: 30 UG; QW; IM
     Route: 030
     Dates: start: 20040801
  4. AVONEX [Suspect]
  5. OXYCONTIN [Concomitant]
  6. PERCOCET [Concomitant]
  7. AMANTADINE [Concomitant]
  8. ZOLOFT [Concomitant]
  9. HYZAAR [Concomitant]
  10. DILTIAZEM [Concomitant]
  11. IBUPROFEN [Concomitant]
  12. ANTIHYPERTENSIVE MEDICATIONS (NOS) [Concomitant]
  13. FLAGYL [Concomitant]
  14. DOXYCYCLINE [Concomitant]

REACTIONS (3)
  - OVARIAN CYST [None]
  - PELVIC INFLAMMATORY DISEASE [None]
  - SQUAMOUS CELL CARCINOMA OF THE CERVIX [None]
